FAERS Safety Report 22247348 (Version 3)
Quarter: 2023Q2

REPORT INFORMATION
  Report Type: Spontaneous
  Country: JP (occurrence: JP)
  Receive Date: 20230425
  Receipt Date: 20230623
  Transmission Date: 20230721
  Serious: Yes (Hospitalization)
  Sender: FDA-Public Use
  Company Number: JP-002147023-NVSJ2023JP006843

PATIENT
  Sex: Male

DRUGS (3)
  1. AMOXICILLIN [Suspect]
     Active Substance: AMOXICILLIN
     Indication: Foetal exposure during pregnancy
     Dosage: UNK
     Route: 064
  2. AMPICILLIN [Suspect]
     Active Substance: AMPICILLIN
     Indication: Foetal exposure during pregnancy
     Dosage: UNK
     Route: 064
  3. ERYTHROMYCIN [Suspect]
     Active Substance: ERYTHROMYCIN
     Indication: Foetal exposure during pregnancy
     Dosage: UNK
     Route: 064

REACTIONS (8)
  - Premature baby [Unknown]
  - Low birth weight baby [Unknown]
  - Neonatal respiratory distress syndrome [Unknown]
  - Escherichia sepsis [Unknown]
  - Pneumonia [Unknown]
  - Lung abscess [Unknown]
  - Pneumatosis [Unknown]
  - Foetal exposure during pregnancy [Unknown]
